FAERS Safety Report 4536886-X (Version None)
Quarter: 2004Q4

REPORT INFORMATION
  Report Type: 
  Country: None (occurrence: None)
  Receive Date: 20041223
  Receipt Date: 20041218
  Transmission Date: 20050328
  Serious: Yes (Other)
  Sender: FDA-Public Use
  Company Number: GB-GLAXOSMITHKLINE-B0362244A

PATIENT
  Age: 69 Year
  Sex: Male

DRUGS (5)
  1. AVODART [Suspect]
     Indication: BENIGN PROSTATIC HYPERPLASIA
     Dosage: 500MCG UNKNOWN
     Route: 048
     Dates: start: 20040915, end: 20040922
  2. ASPIRIN [Concomitant]
     Indication: ANTIPLATELET THERAPY
     Dosage: 75MG PER DAY
     Route: 048
     Dates: start: 20030101
  3. QUININE SULPHATE [Concomitant]
     Indication: MUSCLE CRAMP
     Dosage: 200MG PER DAY
     Route: 048
     Dates: start: 20030101
  4. ATENOLOL [Concomitant]
     Indication: HYPERTENSION
     Dosage: 50MG PER DAY
     Route: 048
     Dates: start: 20030101
  5. TAMSULOSIN [Concomitant]
     Indication: BENIGN PROSTATIC HYPERPLASIA
     Dosage: 400MCG PER DAY
     Route: 048
     Dates: start: 20030101

REACTIONS (1)
  - SWOLLEN TONGUE [None]
